FAERS Safety Report 8380311-8 (Version None)
Quarter: 2012Q2

REPORT INFORMATION
  Report Type: 
  Country: None (occurrence: None)
  Receive Date: 20120523
  Receipt Date: 20120516
  Transmission Date: 20120825
  Serious: Yes (Other)
  Sender: FDA-Public Use
  Company Number: US-PFIZER INC-2012120002

PATIENT
  Sex: Female
  Weight: 79.819 kg

DRUGS (14)
  1. REVATIO [Suspect]
     Indication: PULMONARY HYPERTENSION
     Dosage: UNK, 3X/DAY
     Route: 048
  2. LASIX [Concomitant]
     Dosage: 40 MG ONE DAY AND 80 MG NEXT DAY, DAILY
  3. METOPROLOL [Concomitant]
     Dosage: UNK, 2X/DAY
  4. CALTRATE 600 [Concomitant]
     Dosage: UNK, DAILY
  5. ADVAIR DISKUS 100/50 [Concomitant]
     Dosage: 1 PUFF AT AN UNKNOWN DOSE, 2X/DAY
  6. ASPIRIN [Concomitant]
     Dosage: UNK, DAILY
  7. COUMADIN [Concomitant]
     Indication: ANTICOAGULANT THERAPY
     Dosage: UNK
  8. ZANTAC [Concomitant]
     Dosage: 150 MG, 1X/DAY
  9. PRIMIDONE [Concomitant]
     Dosage: UNK
  10. POTASSIUM [Concomitant]
     Dosage: 20 MG, 1X/DAY
  11. REVATIO [Suspect]
     Dosage: UNK, 6X/DAY
     Route: 048
     Dates: start: 20120412
  12. VICODIN [Concomitant]
     Dosage: UNK, AS NEEDED
  13. LORAZEPAM [Concomitant]
     Dosage: 0.5 MG, AS NEEDED
  14. ATIVAN [Concomitant]
     Dosage: UNK, 4X/DAY

REACTIONS (1)
  - FALL [None]
